FAERS Safety Report 5503900-4 (Version None)
Quarter: 2007Q4

REPORT INFORMATION
  Report Type: 
  Country: None (occurrence: None)
  Receive Date: 20071030
  Receipt Date: 20071030
  Transmission Date: 20080405
  Serious: No
  Sender: FDA-Public Use
  Company Number: None

PATIENT
  Sex: Female
  Weight: 45.3597 kg

DRUGS (2)
  1. ZOMETA [Suspect]
     Indication: BONE PAIN
     Dosage: MONTHLY IV
     Route: 042
     Dates: start: 20040301, end: 20051101
  2. ZOMETA [Suspect]
     Indication: OSTEOPOROSIS
     Dosage: MONTHLY IV
     Route: 042
     Dates: start: 20040301, end: 20051101

REACTIONS (2)
  - LOOSE TOOTH [None]
  - OSTEONECROSIS [None]
